FAERS Safety Report 13685619 (Version 1)
Quarter: 2017Q2

REPORT INFORMATION
  Report Type: Spontaneous
  Country: FR (occurrence: FR)
  Receive Date: 20170623
  Receipt Date: 20170623
  Transmission Date: 20170830
  Serious: Yes (Other)
  Sender: FDA-Public Use
  Company Number: FR-GILEAD-2017-0278968

PATIENT
  Age: 52 Year
  Sex: Male

DRUGS (2)
  1. ZYDELIG [Suspect]
     Active Substance: IDELALISIB
     Indication: B-CELL LYMPHOMA
     Dosage: 150 MG, BID
     Route: 065
  2. ZYDELIG [Suspect]
     Active Substance: IDELALISIB
     Dosage: 100 MG, BID
     Route: 065

REACTIONS (4)
  - Diarrhoea [Not Recovered/Not Resolved]
  - Pancreatic disorder [Unknown]
  - Positron emission tomogram abnormal [Unknown]
  - Lipase increased [Unknown]
